FAERS Safety Report 20124551 (Version 1)
Quarter: 2021Q4

REPORT INFORMATION
  Report Type: Spontaneous
  Country: US (occurrence: US)
  Receive Date: 20211129
  Receipt Date: 20211129
  Transmission Date: 20220303
  Serious: No
  Sender: FDA-Public Use
  Company Number: US-TEVA-2021-US-1979735

PATIENT
  Sex: Female

DRUGS (1)
  1. COPAXONE [Suspect]
     Active Substance: GLATIRAMER ACETATE
     Indication: Multiple sclerosis
     Dosage: FORM STRENGTH AND DOSE UNKNOWN
     Route: 065

REACTIONS (5)
  - Chills [Unknown]
  - Chest pain [Unknown]
  - Dizziness [Unknown]
  - Nausea [Unknown]
  - Chest discomfort [Unknown]
